FAERS Safety Report 26210426 (Version 1)
Quarter: 2025Q4

REPORT INFORMATION
  Report Type: Report from Study
  Country: US (occurrence: US)
  Receive Date: 20251229
  Receipt Date: 20251229
  Transmission Date: 20260117
  Serious: Yes (Other)
  Sender: JOHNSON AND JOHNSON
  Company Number: US-JNJFOC-20251232535

PATIENT
  Age: 67 Year
  Sex: Female

DRUGS (5)
  1. SPRAVATO [Suspect]
     Active Substance: ESKETAMINE
     Indication: Depression
     Dosage: ^^84 MG, 88 TOTAL DOSES^^
     Route: 045
     Dates: start: 20200715, end: 20230331
  2. SPRAVATO [Suspect]
     Active Substance: ESKETAMINE
     Dosage: ^^56 MG, 1 TOTAL DOSE^^
     Route: 045
     Dates: start: 20230428, end: 20230428
  3. SPRAVATO [Suspect]
     Active Substance: ESKETAMINE
     Dosage: ^^84 MG, 19 TOTAL DOSES^^
     Route: 045
     Dates: start: 20230516, end: 20251126
  4. SPRAVATO [Suspect]
     Active Substance: ESKETAMINE
     Dosage: ^^84 MG, 1 TOTAL DOSE^^, RECENT DOSE
     Route: 045
     Dates: start: 20251222, end: 20251222
  5. SPRAVATO [Suspect]
     Active Substance: ESKETAMINE
     Dosage: ^^56 MG, 2 TOTAL DOSES^^
     Route: 045
     Dates: start: 20200708, end: 20200710

REACTIONS (1)
  - Dissociation [Recovered/Resolved]

NARRATIVE: CASE EVENT DATE: 20251222
